FAERS Safety Report 5283307-8 (Version None)
Quarter: 2007Q2

REPORT INFORMATION
  Report Type: 
  Country: None (occurrence: None)
  Receive Date: 20070402
  Receipt Date: 20070321
  Transmission Date: 20071010
  Serious: Yes (Hospitalization)
  Sender: FDA-Public Use
  Company Number: 2007AP01708

PATIENT
  Age: 65 Year
  Sex: Female
  Weight: 62.5 kg

DRUGS (5)
  1. NEXIUM [Suspect]
     Indication: GASTROOESOPHAGEAL REFLUX DISEASE
     Route: 048
     Dates: start: 20030401
  2. UNSPECIFIED [Concomitant]
     Indication: HYPERTENSION
     Route: 048
  3. NIFEDIPINE [Concomitant]
     Indication: HYPERTENSION
     Route: 048
  4. BETALOC [Concomitant]
     Route: 048
  5. LOSEC [Concomitant]
     Indication: GASTRITIS
     Dates: start: 20021001, end: 20030401

REACTIONS (4)
  - EYE PAIN [None]
  - GLAUCOMA [None]
  - VISION BLURRED [None]
  - VISUAL ACUITY REDUCED [None]
